FAERS Safety Report 9543829 (Version 1)
Quarter: 2013Q3

REPORT INFORMATION
  Report Type: Spontaneous
  Country: DE (occurrence: DE)
  Receive Date: 20130923
  Receipt Date: 20130923
  Transmission Date: 20140515
  Serious: Yes (Life-Threatening, Hospitalization)
  Sender: FDA-Public Use
  Company Number: GXKR2013DE003090

PATIENT
  Sex: 0

DRUGS (1)
  1. PARACETAMOL [Suspect]
     Indication: SUICIDAL IDEATION
     Dosage: 20 G, UNK
     Route: 048
     Dates: start: 20130902

REACTIONS (3)
  - Vomiting [Not Recovered/Not Resolved]
  - Transaminases increased [Not Recovered/Not Resolved]
  - Intentional overdose [Not Recovered/Not Resolved]
